FAERS Safety Report 21403123 (Version 1)
Quarter: 2022Q4

REPORT INFORMATION
  Report Type: Spontaneous
  Country: US (occurrence: US)
  Receive Date: 20221003
  Receipt Date: 20221003
  Transmission Date: 20230113
  Serious: Yes (Other)
  Sender: FDA-Public Use
  Company Number: US-GSKCCFUS-Case-01508999_AE-85803

PATIENT

DRUGS (1)
  1. TRELEGY ELLIPTA [Suspect]
     Active Substance: FLUTICASONE FUROATE\UMECLIDINIUM BROMIDE\VILANTEROL TRIFENATATE
     Indication: Product used for unknown indication
     Dosage: UNK UNK, QD (200/62.5/25 UG)
     Route: 055
     Dates: start: 20220922

REACTIONS (7)
  - Foreign body in throat [Unknown]
  - Throat irritation [Unknown]
  - Throat tightness [Unknown]
  - Dysphagia [Unknown]
  - Pain [Recovering/Resolving]
  - Pharyngeal pustule [Unknown]
  - Candida infection [Unknown]

NARRATIVE: CASE EVENT DATE: 20220901
